FAERS Safety Report 7669139-1 (Version None)
Quarter: 2011Q3

REPORT INFORMATION
  Report Type: 
  Country: None (occurrence: None)
  Receive Date: 20110808
  Receipt Date: 20110725
  Transmission Date: 20111222
  Serious: Yes (Other)
  Sender: FDA-Public Use
  Company Number: PHHY2011CA55149

PATIENT
  Sex: Female

DRUGS (11)
  1. ACE INHIBITOR NOS [Concomitant]
  2. DIURETICS [Concomitant]
  3. LIPITOR [Concomitant]
  4. HIDROXIZIN [Concomitant]
  5. ADALAT [Concomitant]
  6. CALCIUM CHANNEL BLOCKERS [Concomitant]
  7. ACETAMINOPHEN [Concomitant]
  8. ALISKIREN [Suspect]
     Dosage: 150 MG, UNK
     Dates: start: 20101110
  9. BETA BLOCKING AGENTS [Concomitant]
  10. ALTACE [Concomitant]
  11. IMDUR [Concomitant]

REACTIONS (6)
  - HIGH DENSITY LIPOPROTEIN DECREASED [None]
  - BLOOD PRESSURE SYSTOLIC INCREASED [None]
  - DEPRESSION [None]
  - SINUSITIS [None]
  - PSYCHIATRIC SYMPTOM [None]
  - BRONCHITIS [None]
